FAERS Safety Report 4886899-3 (Version None)
Quarter: 2006Q1

REPORT INFORMATION
  Report Type: 
  Country: None (occurrence: None)
  Receive Date: 20060119
  Receipt Date: 20060107
  Transmission Date: 20060701
  Serious: Yes (Hospitalization)
  Sender: FDA-Public Use
  Company Number: HQWYE262309JAN06

PATIENT
  Age: 40 Year
  Sex: Female

DRUGS (6)
  1. RAPAMUNE [Suspect]
     Indication: PROPHYLAXIS AGAINST TRANSPLANT REJECTION
     Dosage: SEE IMAGE
     Route: 048
     Dates: start: 20031202, end: 20051201
  2. RAPAMUNE [Suspect]
     Indication: PROPHYLAXIS AGAINST TRANSPLANT REJECTION
     Dosage: SEE IMAGE
     Route: 048
     Dates: start: 20051201
  3. CORTICOSTEROIDS (CORTICOSTEROIDS,) [Suspect]
  4. ENALAPRIL MALEATE [Concomitant]
  5. AZATHIOPRINE [Concomitant]
  6. AZATHIOPRINE [Concomitant]

REACTIONS (4)
  - GASTRITIS [None]
  - METABOLIC ACIDOSIS [None]
  - PYREXIA [None]
  - RENAL IMPAIRMENT [None]
